FAERS Safety Report 24613646 (Version 1)
Quarter: 2024Q4

REPORT INFORMATION
  Report Type: Spontaneous
  Country: US (occurrence: US)
  Receive Date: 20241113
  Receipt Date: 20241113
  Transmission Date: 20250114
  Serious: No
  Sender: BAYER HEALTHCARE PHARMACEUTICALS INC.
  Company Number: US-BAYER-2024A158711

PATIENT
  Sex: Male

DRUGS (2)
  1. KERENDIA [Suspect]
     Active Substance: FINERENONE
     Dosage: 10 MG
     Dates: start: 20240826
  2. KERENDIA [Suspect]
     Active Substance: FINERENONE
     Dosage: 20 MG
     Dates: start: 20240929

REACTIONS (5)
  - Feeling abnormal [Unknown]
  - Dizziness [Unknown]
  - Confusional state [Unknown]
  - Depressed mood [Unknown]
  - Headache [Unknown]

NARRATIVE: CASE EVENT DATE: 20240929
